FAERS Safety Report 21748565 (Version 2)
Quarter: 2022Q4

REPORT INFORMATION
  Report Type: Report from Study
  Country: US (occurrence: US)
  Receive Date: 20221219
  Receipt Date: 20221221
  Transmission Date: 20230112
  Serious: No
  Sender: FDA-Public Use
  Company Number: US-ABBVIE-4206110

PATIENT
  Sex: Female

DRUGS (1)
  1. RINVOQ [Suspect]
     Active Substance: UPADACITINIB
     Indication: Rheumatoid arthritis
     Route: 048

REACTIONS (12)
  - Liver disorder [Recovering/Resolving]
  - Fall [Recovering/Resolving]
  - Influenza [Recovering/Resolving]
  - Gait inability [Recovering/Resolving]
  - Pyrexia [Recovering/Resolving]
  - Rhinorrhoea [Unknown]
  - Diabetes mellitus [Recovering/Resolving]
  - Diarrhoea [Unknown]
  - Sinusitis [Recovering/Resolving]
  - Arthropathy [Unknown]
  - Back pain [Recovering/Resolving]
  - Sciatic nerve injury [Unknown]
